FAERS Safety Report 4444684-0 (Version None)
Quarter: 2004Q3

REPORT INFORMATION
  Report Type: 
  Country: None (occurrence: None)
  Receive Date: 20040902
  Receipt Date: 20040816
  Transmission Date: 20050211
  Serious: Yes (Hospitalization)
  Sender: FDA-Public Use
  Company Number: US_0404102390

PATIENT
  Age: 61 Year
  Sex: Male
  Weight: 104 kg

DRUGS (6)
  1. PEMETREXED [Suspect]
     Indication: COLON CANCER METASTATIC
     Dosage: 500  MG/M2
     Dates: start: 20031216
  2. IRINOTECAN [Suspect]
     Indication: COLON CANCER METASTATIC
     Dosage: 300 MG/M2
     Dates: start: 20031216
  3. EMEND (EMEND) [Concomitant]
  4. DECADRON [Concomitant]
  5. FOLIC ACID [Concomitant]
  6. VITAMIN B-12 [Concomitant]

REACTIONS (1)
  - MALLORY-WEISS SYNDROME [None]
